FAERS Safety Report 4482171-4 (Version None)
Quarter: 2004Q4

REPORT INFORMATION
  Report Type: 
  Country: None (occurrence: None)
  Receive Date: 20041020
  Receipt Date: 20041020
  Transmission Date: 20050328
  Serious: Yes (Other)
  Sender: FDA-Public Use
  Company Number: None

PATIENT
  Sex: Female
  Weight: 102.0593 kg

DRUGS (1)
  1. PAXIL [Suspect]
     Indication: ANXIETY
     Dosage: 1 A DAY ORAL
     Route: 048

REACTIONS (6)
  - CONDUCTION DISORDER [None]
  - DEMENTIA [None]
  - DIZZINESS [None]
  - DRUG DEPENDENCE [None]
  - FEAR [None]
  - NERVOUS SYSTEM DISORDER [None]
